FAERS Safety Report 8401042-1 (Version None)
Quarter: 2012Q2

REPORT INFORMATION
  Report Type: 
  Country: None (occurrence: None)
  Receive Date: 20120525
  Receipt Date: 20120515
  Transmission Date: 20120825
  Serious: Yes (Other)
  Sender: FDA-Public Use
  Company Number: 1204-214

PATIENT
  Sex: Male
  Weight: 99.7913 kg

DRUGS (20)
  1. LEVOTHYROXINE (LEVOTHYROXINE) (TABLET) [Concomitant]
  2. METOPROLOL TARTRATE [Concomitant]
  3. CALCIUM 600 (CALCIUM)(TABLET) [Concomitant]
  4. CYMBALTA [Concomitant]
  5. DIGOXIN [Concomitant]
  6. METOLAZONE (METOLAZONE) (TABLET) [Concomitant]
  7. FISH OIL (FISH OIL)(CAPSULE) [Concomitant]
  8. POTASSIUM CHLORIDE ER (POTASSIUM CHLORIDE) [Concomitant]
  9. EYLEA [Suspect]
     Indication: AGE-RELATED MACULAR DEGENERATION
     Dosage: 2 MG, ONCE, INTRAVITREAL
     Dates: start: 20120319, end: 20120319
  10. FLUOCINONIDE (FLUOCINONIDE) (OINTMENT) [Concomitant]
  11. MSM (METHYLSULFONYLMETHANE) (CAPSULE) [Concomitant]
  12. DONEPEZIL (DONEPEZIL) (TABLET) [Concomitant]
  13. FLAGYL [Concomitant]
  14. FUROSEMIDE (FUROSEMIDE) (TABLET) [Concomitant]
  15. MULTIVITAMINS (MULTIVITAMINS) (TABLET) [Concomitant]
  16. WARFARIN SODIUM [Concomitant]
  17. FERROUS GLUCONATE (FERROUS GLUCONATE)(TABLET) [Concomitant]
  18. NEURONTIN [Concomitant]
  19. PRAVASTATIN (PRAVASTATIN) (TABLET) [Concomitant]
  20. SEROQUEL [Concomitant]

REACTIONS (3)
  - VISUAL IMPAIRMENT [None]
  - PUPILS UNEQUAL [None]
  - VISUAL ACUITY REDUCED [None]
